FAERS Safety Report 11048545 (Version 1)
Quarter: 2015Q2

REPORT INFORMATION
  Report Type: Report from Study
  Country: US (occurrence: US)
  Receive Date: 20150420
  Receipt Date: 20150420
  Transmission Date: 20150821
  Serious: Yes (Other)
  Sender: FDA-Public Use
  Company Number: PHEH2015US006944

PATIENT
  Sex: Male
  Weight: 101.3 kg

DRUGS (1)
  1. GILENYA [Suspect]
     Active Substance: FINGOLIMOD HYDROCHLORIDE
     Indication: MULTIPLE SCLEROSIS
     Dosage: 0.5 MG, QD
     Route: 048
     Dates: start: 20120912

REACTIONS (10)
  - Malaise [Unknown]
  - Insomnia [Unknown]
  - Chronic obstructive pulmonary disease [Unknown]
  - Depression [Unknown]
  - Multiple sclerosis relapse [Unknown]
  - Electroencephalogram abnormal [Unknown]
  - Gait disturbance [Unknown]
  - Fatigue [Unknown]
  - Hyperlipidaemia [Unknown]
  - Amnesia [Unknown]
